FAERS Safety Report 6715373-4 (Version None)
Quarter: 2010Q2

REPORT INFORMATION
  Report Type: 
  Country: None (occurrence: None)
  Receive Date: 20100426
  Receipt Date: 20100215
  Transmission Date: 20101027
  Serious: Yes (Hospitalization)
  Sender: FDA-Public Use
  Company Number: 2010BI004504

PATIENT
  Age: 24 Year
  Sex: Male
  Weight: 99.7913 kg

DRUGS (1)
  1. TYSABRI [Suspect]
     Indication: CROHN'S DISEASE
     Dosage: 300 MG;QM;IV
     Route: 042
     Dates: start: 20090501, end: 20100105

REACTIONS (8)
  - ADRENAL INSUFFICIENCY [None]
  - ARTHRALGIA [None]
  - CROHN'S DISEASE [None]
  - DEPRESSION [None]
  - JOINT LOCK [None]
  - POOR VENOUS ACCESS [None]
  - SURGERY [None]
  - WEIGHT DECREASED [None]
